FAERS Safety Report 13279738 (Version 2)
Quarter: 2017Q2

REPORT INFORMATION
  Report Type: Spontaneous
  Country: US (occurrence: US)
  Receive Date: 20170301
  Receipt Date: 20170410
  Transmission Date: 20170830
  Serious: No
  Sender: FDA-Public Use
  Company Number: PHEH2017US005205

PATIENT
  Sex: Female

DRUGS (1)
  1. VIVELLE [Suspect]
     Active Substance: ESTRADIOL
     Indication: PRODUCT USED FOR UNKNOWN INDICATION
     Dosage: 0.05 MG, TWICE A WEEK
     Route: 065

REACTIONS (4)
  - Product adhesion issue [Unknown]
  - Suspected counterfeit product [Unknown]
  - Hot flush [Unknown]
  - Irritability [Unknown]
